FAERS Safety Report 4778003-7 (Version None)
Quarter: 2005Q3

REPORT INFORMATION
  Report Type: 
  Country: None (occurrence: None)
  Receive Date: 20050921
  Receipt Date: 20050901
  Transmission Date: 20060218
  Serious: Yes (Other)
  Sender: FDA-Public Use
  Company Number: GBS050918337

PATIENT
  Age: 50 Year
  Sex: Male

DRUGS (4)
  1. TADALAFIL [Suspect]
     Indication: ERECTILE DYSFUNCTION
     Dosage: 10 MG
     Dates: start: 20050603, end: 20050728
  2. ATENOLOL [Concomitant]
  3. BENDROFLUAZIDE [Concomitant]
  4. LANSOPRAZOLE [Concomitant]

REACTIONS (2)
  - PAROXYSMAL ARRHYTHMIA [None]
  - PULSE PRESSURE DECREASED [None]
